FAERS Safety Report 6831791-8 (Version None)
Quarter: 2010Q3

REPORT INFORMATION
  Report Type: 
  Country: None (occurrence: None)
  Receive Date: 20100712
  Receipt Date: 20100701
  Transmission Date: 20110219
  Serious: Yes (Hospitalization, Other)
  Sender: FDA-Public Use
  Company Number: BR-GENZYME-RENA-1000749

PATIENT
  Sex: Male

DRUGS (3)
  1. RENAGEL [Suspect]
     Indication: HYPERPHOSPHATAEMIA
     Dosage: 1.6 G, TID
     Route: 048
     Dates: start: 20070701, end: 20100524
  2. CITALOPRAM HYDROBROMIDE [Concomitant]
     Indication: PRODUCT USED FOR UNKNOWN INDICATION
     Dosage: UNK
     Route: 065
  3. ANTIHYPERTENSIVES [Concomitant]
     Indication: HYPERTENSION
     Dosage: UNK
     Route: 065

REACTIONS (8)
  - CHEST PAIN [None]
  - DEPRESSION [None]
  - HYPERPHOSPHATAEMIA [None]
  - INTENTIONAL OVERDOSE [None]
  - OESOPHAGEAL DILATATION [None]
  - OESOPHAGEAL ULCER [None]
  - OESOPHAGITIS [None]
  - SUICIDE ATTEMPT [None]
